FAERS Safety Report 16492033 (Version 1)
Quarter: 2019Q2

REPORT INFORMATION
  Report Type: Report from Study
  Country: JP (occurrence: JP)
  Receive Date: 20190628
  Receipt Date: 20190628
  Transmission Date: 20190711
  Serious: Yes (Hospitalization, Other)
  Sender: FDA-Public Use
  Company Number: JP-ROCHE-2341855

PATIENT
  Age: 57 Year
  Sex: Female
  Weight: 50 kg

DRUGS (39)
  1. TACROLIMUS. [Suspect]
     Active Substance: TACROLIMUS
     Route: 042
     Dates: start: 20171017, end: 20171017
  2. VANCOMYCIN [Concomitant]
     Active Substance: VANCOMYCIN
     Indication: SEPSIS
     Route: 042
     Dates: start: 20170924, end: 20170928
  3. TACROLIMUS. [Suspect]
     Active Substance: TACROLIMUS
     Route: 042
     Dates: start: 20170930, end: 20170930
  4. TACROLIMUS. [Suspect]
     Active Substance: TACROLIMUS
     Route: 042
     Dates: start: 20171002, end: 20171002
  5. TACROLIMUS. [Suspect]
     Active Substance: TACROLIMUS
     Route: 042
     Dates: start: 20171005, end: 20171005
  6. METHYLPREDNISOLONE NA SUCCINATE [Concomitant]
     Active Substance: METHYLPREDNISOLONE SODIUM SUCCINATE
     Route: 042
     Dates: start: 20170908, end: 20170908
  7. FUNGUARD [Concomitant]
     Active Substance: MICAFUNGIN SODIUM
     Indication: INFECTION PROPHYLAXIS
     Route: 042
     Dates: start: 20170829, end: 20170911
  8. TAZOPIPE [Concomitant]
     Active Substance: PIPERACILLIN SODIUM\TAZOBACTAM SODIUM
     Indication: SEPSIS
     Route: 042
     Dates: start: 20170910, end: 20170911
  9. TACROLIMUS. [Suspect]
     Active Substance: TACROLIMUS
     Route: 042
     Dates: start: 20171007, end: 20171007
  10. TACROLIMUS. [Suspect]
     Active Substance: TACROLIMUS
     Route: 042
     Dates: start: 20171010, end: 20171010
  11. CELLCEPT [Suspect]
     Active Substance: MYCOPHENOLATE MOFETIL\MYCOPHENOLATE MOFETIL HYDROCHLORIDE
     Indication: PROPHYLAXIS AGAINST TRANSPLANT REJECTION
     Route: 048
     Dates: start: 20170830, end: 20171023
  12. METHYLPREDNISOLONE NA SUCCINATE [Concomitant]
     Active Substance: METHYLPREDNISOLONE SODIUM SUCCINATE
     Route: 042
     Dates: start: 20170906, end: 20170908
  13. PREDNISOLONE. [Concomitant]
     Active Substance: PREDNISOLONE
     Indication: PROPHYLAXIS AGAINST TRANSPLANT REJECTION
     Route: 048
     Dates: start: 20170925, end: 20171005
  14. VICCILLIN [AMPICILLIN] [Concomitant]
     Indication: SEPSIS
     Route: 042
     Dates: start: 20170930
  15. TAZOPIPE [Concomitant]
     Active Substance: PIPERACILLIN SODIUM\TAZOBACTAM SODIUM
     Route: 042
     Dates: start: 20171002, end: 20171006
  16. TACROLIMUS. [Suspect]
     Active Substance: TACROLIMUS
     Route: 042
     Dates: start: 20171008, end: 20171008
  17. TACROLIMUS. [Suspect]
     Active Substance: TACROLIMUS
     Route: 042
     Dates: start: 20171013, end: 20171013
  18. TACROLIMUS. [Suspect]
     Active Substance: TACROLIMUS
     Route: 042
     Dates: start: 20171014, end: 20171014
  19. METHYLPREDNISOLONE NA SUCCINATE [Concomitant]
     Active Substance: METHYLPREDNISOLONE SODIUM SUCCINATE
     Route: 042
     Dates: start: 20170911, end: 20170912
  20. METHYLPREDNISOLONE NA SUCCINATE [Concomitant]
     Active Substance: METHYLPREDNISOLONE SODIUM SUCCINATE
     Route: 042
     Dates: start: 20170913, end: 20170914
  21. TACROLIMUS. [Suspect]
     Active Substance: TACROLIMUS
     Route: 042
     Dates: start: 20171009, end: 20171009
  22. METHYLPREDNISOLONE NA SUCCINATE [Concomitant]
     Active Substance: METHYLPREDNISOLONE SODIUM SUCCINATE
     Route: 042
     Dates: start: 20170915, end: 20170924
  23. CLAFORAN [Concomitant]
     Active Substance: CEFOTAXIME SODIUM
     Indication: INFECTION PROPHYLAXIS
     Route: 042
     Dates: start: 20170829, end: 20170905
  24. MEROPEN [MEROPENEM TRIHYDRATE] [Concomitant]
     Indication: SEPSIS
     Route: 042
     Dates: start: 20171007
  25. TACROLIMUS. [Suspect]
     Active Substance: TACROLIMUS
     Route: 042
     Dates: start: 20171001, end: 20171001
  26. TACROLIMUS. [Suspect]
     Active Substance: TACROLIMUS
     Route: 042
     Dates: start: 20171006, end: 20171006
  27. TACROLIMUS. [Suspect]
     Active Substance: TACROLIMUS
     Route: 042
     Dates: start: 20171012, end: 20171012
  28. RITUXAN [Suspect]
     Active Substance: RITUXIMAB
     Indication: PROPHYLAXIS AGAINST TRANSPLANT REJECTION
     Route: 041
     Dates: start: 20170815, end: 20170815
  29. TACROLIMUS. [Suspect]
     Active Substance: TACROLIMUS
     Route: 042
     Dates: start: 20171003, end: 20171003
  30. TACROLIMUS. [Suspect]
     Active Substance: TACROLIMUS
     Route: 042
     Dates: start: 20171004, end: 20171004
  31. TACROLIMUS. [Suspect]
     Active Substance: TACROLIMUS
     Route: 042
     Dates: start: 20171015, end: 20171015
  32. METHYLPREDNISOLONE NA SUCCINATE [Concomitant]
     Active Substance: METHYLPREDNISOLONE SODIUM SUCCINATE
     Indication: PROPHYLAXIS AGAINST TRANSPLANT REJECTION
     Route: 042
     Dates: start: 20170829, end: 20170905
  33. TACROLIMUS. [Suspect]
     Active Substance: TACROLIMUS
     Indication: PROPHYLAXIS AGAINST TRANSPLANT REJECTION
     Route: 042
     Dates: start: 20170929, end: 20170929
  34. TACROLIMUS. [Suspect]
     Active Substance: TACROLIMUS
     Route: 042
     Dates: start: 20171011, end: 20171011
  35. TACROLIMUS. [Suspect]
     Active Substance: TACROLIMUS
     Route: 042
     Dates: start: 20171016, end: 20171016
  36. TACROLIMUS. [Suspect]
     Active Substance: TACROLIMUS
     Route: 042
     Dates: start: 20171018, end: 20171018
  37. CELLCEPT [Suspect]
     Active Substance: MYCOPHENOLATE MOFETIL\MYCOPHENOLATE MOFETIL HYDROCHLORIDE
     Route: 048
     Dates: start: 20171024
  38. METHYLPREDNISOLONE NA SUCCINATE [Concomitant]
     Active Substance: METHYLPREDNISOLONE SODIUM SUCCINATE
     Route: 042
     Dates: start: 20170909, end: 20170910
  39. VICCILLIN [AMPICILLIN] [Concomitant]
     Indication: INFECTION PROPHYLAXIS
     Route: 042
     Dates: start: 20170829, end: 20170905

REACTIONS (5)
  - Biliary tract disorder [Recovered/Resolved]
  - Gamma-glutamyltransferase increased [Recovering/Resolving]
  - Cytomegalovirus viraemia [Recovered/Resolved]
  - Large intestine perforation [Recovered/Resolved]
  - Pneumonia [Recovered/Resolved]

NARRATIVE: CASE EVENT DATE: 20170919
